FAERS Safety Report 8588505 (Version 2)
Quarter: 2013Q1

REPORT INFORMATION
  Report Type: Spontaneous
  Country: US (occurrence: US)
  Receive Date: 20120531
  Receipt Date: 20130129
  Transmission Date: 20140127
  Serious: Yes (Other)
  Sender: FDA-Public Use
  Company Number: US-BAYER-2012-052513

PATIENT
  Age: 50 Year
  Sex: Female

DRUGS (2)
  1. YASMIN [Suspect]
     Dosage: UNK
     Dates: start: 200704
  2. YAZ [Suspect]
     Dosage: UNK
     Dates: start: 200805

REACTIONS (3)
  - Pulmonary embolism [None]
  - Injury [None]
  - Pain [None]
